FAERS Safety Report 23966118 (Version 1)
Quarter: 2024Q2

REPORT INFORMATION
  Report Type: Spontaneous
  Country: US (occurrence: US)
  Receive Date: 20240612
  Receipt Date: 20240612
  Transmission Date: 20240716
  Serious: Yes (Other)
  Sender: FDA-Public Use
  Company Number: US-002147023-NVSC2024US118579

PATIENT
  Age: 5 Year
  Sex: Female

DRUGS (2)
  1. TRAMETINIB [Suspect]
     Active Substance: TRAMETINIB
     Indication: Brain stem glioma
     Dosage: UNK
     Route: 065
     Dates: start: 20231219, end: 20240408
  2. ALBUMIN HUMAN [Concomitant]
     Active Substance: ALBUMIN HUMAN
     Indication: Product used for unknown indication
     Route: 065

REACTIONS (8)
  - Periorbital swelling [Recovered/Resolved]
  - Blood albumin decreased [Recovered/Resolved]
  - Fatigue [Recovering/Resolving]
  - Full blood count decreased [Recovering/Resolving]
  - Fluid retention [Recovering/Resolving]
  - Adverse event [Unknown]
  - Swelling face [Not Recovered/Not Resolved]
  - Eye swelling [Not Recovered/Not Resolved]

NARRATIVE: CASE EVENT DATE: 20240327
